FAERS Safety Report 25976307 (Version 3)
Quarter: 2025Q4

REPORT INFORMATION
  Report Type: Report from Study
  Country: US (occurrence: US)
  Receive Date: 20251029
  Receipt Date: 20251112
  Transmission Date: 20260118
  Serious: No
  Sender: ABBVIE
  Company Number: US-ABBVIE-6516481

PATIENT
  Age: 60 Year
  Sex: Female
  Weight: 64.863 kg

DRUGS (5)
  1. SKYRIZI [Suspect]
     Active Substance: RISANKIZUMAB-RZAA
     Indication: Psoriasis
     Dosage: FORM STRENGTH: 150 MILLIGRAM
     Route: 058
     Dates: start: 20250407
  2. ASPIRIN [Concomitant]
     Active Substance: ASPIRIN
     Indication: Cerebrovascular accident
     Dosage: LOW DOSE
  3. METOPROLOL [Concomitant]
     Active Substance: METOPROLOL
     Indication: Cardiac disorder
  4. LIPITOR [Concomitant]
     Active Substance: ATORVASTATIN CALCIUM
     Indication: Blood cholesterol
  5. CLOBETASOL [Concomitant]
     Active Substance: CLOBETASOL
     Indication: Nail bed disorder

REACTIONS (5)
  - Abdominal discomfort [Recovering/Resolving]
  - Stress [Not Recovered/Not Resolved]
  - Swelling face [Recovering/Resolving]
  - Gastrointestinal pain [Recovering/Resolving]
  - Psoriasis [Recovering/Resolving]

NARRATIVE: CASE EVENT DATE: 20250101
